FAERS Safety Report 9585757 (Version 1)
Quarter: 2013Q4

REPORT INFORMATION
  Report Type: Spontaneous
  Country: US (occurrence: None)
  Receive Date: 20131002
  Receipt Date: 20131002
  Transmission Date: 20140711
  Serious: Yes (Disabling)
  Sender: FDA-Public Use
  Company Number: None

PATIENT
  Age: 55 Year
  Sex: Male
  Weight: 72.58 kg

DRUGS (2)
  1. CIPRO [Suspect]
     Indication: DIARRHOEA
     Dosage: 3 PILLS I BELIEVE?   ONCE DAILY  TAKEN BY MOUTH
     Route: 048
     Dates: start: 20090211, end: 20090214
  2. CIPRO [Suspect]
     Indication: WATER POLLUTION
     Dosage: 3 PILLS I BELIEVE?   ONCE DAILY  TAKEN BY MOUTH
     Route: 048
     Dates: start: 20090211, end: 20090214

REACTIONS (6)
  - Breakthrough pain [None]
  - Neuropathy peripheral [None]
  - Disease progression [None]
  - Muscle twitching [None]
  - Hallucination [None]
  - Impaired driving ability [None]
